FAERS Safety Report 11845446 (Version 1)
Quarter: 2015Q4

REPORT INFORMATION
  Report Type: Spontaneous
  Country: US (occurrence: US)
  Receive Date: 20151217
  Receipt Date: 20151217
  Transmission Date: 20160305
  Serious: No
  Sender: FDA-Public Use
  Company Number: US-PFIZER INC-2015443512

PATIENT
  Age: 71 Year
  Sex: Male
  Weight: 90 kg

DRUGS (3)
  1. ATORVASTATIN CALCIUM. [Suspect]
     Active Substance: ATORVASTATIN CALCIUM
     Indication: STENT PLACEMENT
     Dosage: 10 MG, 1X/DAY TABLETS ORALLY
     Route: 048
     Dates: start: 2014
  2. CLOPIDOGREL BISULFATE. [Concomitant]
     Active Substance: CLOPIDOGREL BISULFATE
     Indication: BLOOD DISORDER
     Dosage: UNK, 1X/DAY
  3. BABY ASPIRIN [Concomitant]
     Active Substance: ASPIRIN
     Indication: STENT PLACEMENT
     Dosage: 80 OR 88 MG, 1X/DAY

REACTIONS (12)
  - Diarrhoea [Unknown]
  - Feeling abnormal [Unknown]
  - Muscle spasms [Unknown]
  - Amnesia [Unknown]
  - Erectile dysfunction [Unknown]
  - Gastric disorder [Unknown]
  - Malaise [Unknown]
  - Muscle atrophy [Unknown]
  - Mental disorder [Unknown]
  - Nausea [Unknown]
  - Muscle disorder [Unknown]
  - Gait disturbance [Unknown]
